FAERS Safety Report 25982077 (Version 1)
Quarter: 2025Q4

REPORT INFORMATION
  Report Type: Spontaneous
  Country: EU (occurrence: EU)
  Receive Date: 20251031
  Receipt Date: 20251031
  Transmission Date: 20260119
  Serious: Yes (Hospitalization, Disabling, Other)
  Sender: CELLTRION
  Company Number: None

PATIENT

DRUGS (7)
  1. VEGZELMA [Suspect]
     Active Substance: BEVACIZUMAB-ADCD
     Indication: Rectal adenocarcinoma
     Dosage: ADMINISTERED 23 CYCLES EVERY 2 WEEKS AT A DOSE OF 425 - 450 MGCOMBINATION WITH FOLFIRI (IRINOTEKAN +
     Route: 042
     Dates: start: 20240403, end: 20250929
  2. ZALDIAR [Concomitant]
     Active Substance: ACETAMINOPHEN\TRAMADOL HYDROCHLORIDE
     Dosage: 1-1-1, EVERY 8 HOURS
  3. NOVALGIN (METAMIZOLE SODIUM) [Concomitant]
     Active Substance: METAMIZOLE SODIUM
     Indication: Pain
     Dosage: MAXIMUM 3X TIMES A DAY
  4. ROSUVASTATIN CALCIUM [Concomitant]
     Active Substance: ROSUVASTATIN CALCIUM
     Dosage: 0-0-1
  5. VIDONORM [Concomitant]
     Dosage: 1-0-0
  6. CITALOPRAM [Concomitant]
     Active Substance: CITALOPRAM
     Dosage: 1-0-0
  7. LONSURF [Concomitant]
     Active Substance: TIPIRACIL HYDROCHLORIDE\TRIFLURIDINE
     Indication: Rectal adenocarcinoma
     Dosage: IN COMBINATION WITF BEVACIZUMAB FROM 13.06.2025, UNKNOWN DOSE
     Dates: start: 20250613

REACTIONS (1)
  - Rectal perforation [Not Recovered/Not Resolved]

NARRATIVE: CASE EVENT DATE: 20251006
